FAERS Safety Report 9359193 (Version 1)
Quarter: 2013Q2

REPORT INFORMATION
  Report Type: Spontaneous
  Country: CA (occurrence: CA)
  Receive Date: 20130620
  Receipt Date: 20130620
  Transmission Date: 20140414
  Serious: Yes (Disabling)
  Sender: FDA-Public Use
  Company Number: CA-TEVA-414089USA

PATIENT
  Sex: Female
  Weight: 49.94 kg

DRUGS (11)
  1. SYNTHROID [Concomitant]
  2. TIMOLOL [Concomitant]
  3. ZOPICLONE [Concomitant]
  4. DILTIAZEM [Suspect]
     Dosage: 180 MILLIGRAM DAILY;
     Route: 065
  5. ASA [Concomitant]
  6. DIOVAN [Concomitant]
  7. HYDROCHLOROTHIAZIDE [Concomitant]
  8. PREDNISONE [Concomitant]
  9. RABEPRAZOLE [Concomitant]
  10. RAMIPRIL [Concomitant]
  11. RENEDIL [Concomitant]
     Dosage: EXTENDED RELEASE

REACTIONS (3)
  - Muscular weakness [Not Recovered/Not Resolved]
  - Myalgia [Not Recovered/Not Resolved]
  - Tension headache [Not Recovered/Not Resolved]
